FAERS Safety Report 9096800 (Version 3)
Quarter: 2013Q1

REPORT INFORMATION
  Report Type: Spontaneous
  Country: CA (occurrence: CA)
  Receive Date: 20130211
  Receipt Date: 20130305
  Transmission Date: 20140127
  Serious: Yes (Other)
  Sender: FDA-Public Use
  Company Number: CA-AMGEN-CANSP2013007965

PATIENT
  Age: 59 Year
  Sex: Female
  Weight: 53.06 kg

DRUGS (15)
  1. ENBREL [Suspect]
     Indication: PSORIASIS
     Dosage: 50 MG, QWK
     Route: 058
     Dates: start: 201212
  2. METHOTREXATE [Concomitant]
     Dosage: UNK
  3. PREDNISONE [Concomitant]
     Dosage: UNK
  4. CELEBREX [Concomitant]
     Dosage: UNK
  5. FOLIC ACID [Concomitant]
     Dosage: UNK
  6. ACTONEL [Concomitant]
     Dosage: UNK
  7. CALCIUM [Concomitant]
     Dosage: UNK
  8. NEXIUM                             /01479302/ [Concomitant]
     Dosage: UNK
  9. NEURONTIN [Concomitant]
     Dosage: UNK
  10. IMOVANE [Concomitant]
     Dosage: UNK
  11. TYLENOL /00020001/ [Concomitant]
     Dosage: UNK
  12. MAXALT                             /01406501/ [Concomitant]
     Dosage: UNK
  13. DERMOVATE [Concomitant]
     Dosage: UNK
  14. GRAVOL [Concomitant]
     Dosage: UNK
  15. LEUCOVORIN                         /00566701/ [Concomitant]
     Dosage: UNK

REACTIONS (2)
  - Injection site erythema [Not Recovered/Not Resolved]
  - Injection site pain [Not Recovered/Not Resolved]
